FAERS Safety Report 9759796 (Version 2)
Quarter: 2013Q4

REPORT INFORMATION
  Report Type: Spontaneous
  Country: US (occurrence: US)
  Receive Date: 20131216
  Receipt Date: 20131216
  Transmission Date: 20140711
  Serious: No
  Sender: FDA-Public Use
  Company Number: US-GILEAD-2010-0028668

PATIENT
  Sex: Female
  Weight: 84.37 kg

DRUGS (21)
  1. LETAIRIS [Suspect]
     Indication: PULMONARY ARTERIAL HYPERTENSION
     Route: 048
     Dates: start: 20090831
  2. ALLOPURINOL [Concomitant]
  3. COUMADIN [Concomitant]
  4. LIPITOR [Concomitant]
  5. BENADRYL [Concomitant]
  6. NEOSPORIN OINTMENT [Concomitant]
  7. VITAMIN D [Concomitant]
  8. VENTAVIS [Concomitant]
  9. LASIX [Concomitant]
  10. VITAMIN C [Concomitant]
  11. JANUMET [Concomitant]
  12. METFORMIN [Concomitant]
  13. OXYGEN [Concomitant]
  14. PRILOSEC [Concomitant]
  15. ALDACTONE [Concomitant]
  16. TIKOSYN [Concomitant]
  17. BENAZEPRIL [Concomitant]
  18. FERROUS SULFATE [Concomitant]
  19. MAG-OX [Concomitant]
  20. CITRACAL+D [Concomitant]
  21. SPIRONOLACTONE [Concomitant]

REACTIONS (2)
  - Rash [Unknown]
  - Pruritus [Unknown]
